FAERS Safety Report 8319368 (Version 4)
Quarter: 2012Q4

REPORT INFORMATION
  Report Type: 
  Country: US (occurrence: US)
  Receive Date: 20120103
  Receipt Date: 20121109
  Transmission Date: 20130627
  Serious: Yes (Other)
  Sender: FDA-Public Use
  Company Number: US-ACTELION-A-US2011-58457

PATIENT
  Age: 54 Year
  Sex: Male

DRUGS (14)
  1. VELETRI [Suspect]
     Indication: PULMONARY ARTERIAL HYPERTENSION
     Dosage: 48 ng/kg, per min
     Route: 042
     Dates: start: 20101118
  2. TRACLEER [Suspect]
     Indication: PULMONARY ARTERIAL HYPERTENSION
     Dosage: UNK
     Route: 048
     Dates: start: 20040226
  3. DIGOXIN [Concomitant]
  4. LASIX [Concomitant]
  5. OXYGEN [Concomitant]
  6. METOLAZONE [Concomitant]
  7. POTASSIUM [Concomitant]
  8. FLUOXETINE HCL [Concomitant]
  9. FAMOTIDINE [Concomitant]
  10. CYCLOBENZAPRINE [Concomitant]
  11. CLINDAMYCIN [Concomitant]
  12. ALLOPURINOL [Concomitant]
  13. MULTI-VIT [Concomitant]
  14. COUMADIN [Concomitant]

REACTIONS (9)
  - Catheter site infection [Unknown]
  - Staphylococcal infection [Unknown]
  - Catheter site discharge [Recovered/Resolved]
  - Device leakage [Recovered/Resolved]
  - Device related infection [Recovered/Resolved]
  - Medical device complication [Recovered/Resolved]
  - Catheter placement [Unknown]
  - Tooth fracture [Unknown]
  - Device expulsion [None]
